FAERS Safety Report 15325770 (Version 2)
Quarter: 2018Q3

REPORT INFORMATION
  Report Type: Spontaneous
  Country: FR (occurrence: FR)
  Receive Date: 20180828
  Receipt Date: 20180925
  Transmission Date: 20181010
  Serious: Yes (Other)
  Sender: FDA-Public Use
  Company Number: PHHY2018FR079313

PATIENT
  Age: 72 Year
  Sex: Female

DRUGS (4)
  1. BSS [Suspect]
     Active Substance: CALCIUM CHLORIDE\MAGNESIUM CHLORIDE\POTASSIUM CHLORIDE\SODIUM ACETATE\SODIUM CHLORIDE\SODIUM CITRATE
     Indication: EYE IRRIGATION
     Route: 065
     Dates: start: 20180518, end: 20180518
  2. TOBREX [Concomitant]
     Active Substance: TOBRAMYCIN
     Indication: POSTOPERATIVE CARE
     Dosage: UNK UNK, QID
     Route: 047
  3. DEXAFREE [Concomitant]
     Active Substance: DEXAMETHASONE SODIUM PHOSPHATE
     Indication: POSTOPERATIVE CARE
     Dosage: UNK UNK, QID (DECREASING OF 1 DROP PER WEEK DURING 1 MONTH.)
     Route: 065
  4. STERDEX [Concomitant]
     Active Substance: DEXAMETHASONE\OXYTETRACYCLINE
     Indication: POSTOPERATIVE CARE
     Dosage: (IN THE EVENING)
     Route: 065

REACTIONS (1)
  - Cystoid macular oedema [Not Recovered/Not Resolved]

NARRATIVE: CASE EVENT DATE: 20180615
